FAERS Safety Report 5044145-4 (Version None)
Quarter: 2006Q2

REPORT INFORMATION
  Report Type: 
  Country: None (occurrence: None)
  Receive Date: 20060601
  Receipt Date: 20060310
  Transmission Date: 20061013
  Serious: No
  Sender: FDA-Public Use
  Company Number: US200603003054

PATIENT
  Sex: Female

DRUGS (2)
  1. CYMBALTA [Suspect]
     Indication: DEPRESSION
     Dosage: 60 MG, DAILY (1/D)
     Dates: start: 20051201, end: 20060301
  2. PROTOXIN ^WYETH-AYERST^ (PANTOPRAZOLE SODIUM) [Concomitant]

REACTIONS (7)
  - BACK PAIN [None]
  - CHEST PAIN [None]
  - DIZZINESS [None]
  - FEELING COLD [None]
  - HYPOAESTHESIA [None]
  - PARAESTHESIA [None]
  - SHOULDER PAIN [None]
